FAERS Safety Report 8531338-4 (Version None)
Quarter: 2012Q3

REPORT INFORMATION
  Report Type: 
  Country: None (occurrence: None)
  Receive Date: 20120711
  Receipt Date: 20120702
  Transmission Date: 20120928
  Serious: Yes (Other)
  Sender: FDA-Public Use
  Company Number: GER/UKI/12/0024880

PATIENT
  Age: 31 Year
  Sex: Female

DRUGS (14)
  1. PHENOBARBITAL TAB [Concomitant]
  2. ZONISAMIDE [Concomitant]
  3. LACOSAMIDE [Suspect]
     Indication: PRODUCT USED FOR UNKNOWN INDICATION
     Dosage: 150 MG, 2 IN 1 D
  4. MIDAZOLAM HCL [Concomitant]
  5. CLONAZEPAM [Concomitant]
  6. PHENYTOIN (PHENYTOIN) [Concomitant]
  7. LAMOTRIGINE [Concomitant]
  8. PHENOBARBITAL TAB [Concomitant]
  9. TOPIRAMATE [Concomitant]
  10. PIRACETAM (PIRACETAM) [Concomitant]
  11. VIGABATRIN (VIGABATRIN) [Concomitant]
  12. CLOBAZAM [Concomitant]
  13. VALPROATE SODIUM [Concomitant]
  14. LEVETIRACETAM [Suspect]
     Indication: PRODUCT USED FOR UNKNOWN INDICATION

REACTIONS (5)
  - DRUG INEFFECTIVE [None]
  - GAIT DISTURBANCE [None]
  - MOVEMENT DISORDER [None]
  - GENERAL PHYSICAL HEALTH DETERIORATION [None]
  - PARTIAL SEIZURES [None]
